FAERS Safety Report 22539875 (Version 1)
Quarter: 2023Q2

REPORT INFORMATION
  Report Type: Spontaneous
  Country: CA (occurrence: CA)
  Receive Date: 20230609
  Receipt Date: 20230609
  Transmission Date: 20230722
  Serious: Yes (Other)
  Sender: FDA-Public Use
  Company Number: CA-BAYER-2023A078931

PATIENT
  Age: 55 Year
  Sex: Female
  Weight: 80 kg

DRUGS (1)
  1. GADOBUTROL [Suspect]
     Active Substance: GADOBUTROL
     Indication: Magnetic resonance imaging
     Dosage: 8 ML, ONCE
     Route: 042

REACTIONS (5)
  - Chest pain [Unknown]
  - Blood pressure increased [Unknown]
  - Oxygen saturation decreased [Unknown]
  - Dyspnoea [Unknown]
  - Cough [Unknown]
